FAERS Safety Report 14152151 (Version 1)
Quarter: 2017Q4

REPORT INFORMATION
  Report Type: Report from Study
  Country: DE (occurrence: DE)
  Receive Date: 20171102
  Receipt Date: 20171102
  Transmission Date: 20180321
  Serious: Yes (Death, Hospitalization, Other)
  Sender: FDA-Public Use
  Company Number: DE-ACTELION-A-CH2017-161442

PATIENT
  Age: 77 Year
  Sex: Female
  Weight: 57 kg

DRUGS (22)
  1. MOVICOL [Concomitant]
     Active Substance: POLYETHYLENE GLYCOL 3350\POTASSIUM CHLORIDE\SODIUM BICARBONATE\SODIUM CHLORIDE
     Dosage: 1 SACHET, TID
  2. CANDESARTAN. [Concomitant]
     Active Substance: CANDESARTAN
     Dosage: 8 MG, BID
  3. FOLIC ACID. [Concomitant]
     Active Substance: FOLIC ACID
     Dosage: 5 MG, UNK
  4. NOVALGIN [Concomitant]
     Active Substance: METAMIZOLE SODIUM
     Dosage: 500 MG, UNK
  5. KALIUM [Concomitant]
     Active Substance: POTASSIUM CHLORIDE
     Dosage: 1 SACHET, TID
  6. FORTIMEL [Concomitant]
     Active Substance: DIETARY SUPPLEMENT
     Dosage: 1 DF, OD
  7. TRACLEER [Suspect]
     Active Substance: BOSENTAN
     Indication: SCLERODERMA ASSOCIATED DIGITAL ULCER
     Dosage: 125 MG, BID
     Route: 048
     Dates: start: 20130315
  8. ASPIRIN. [Concomitant]
     Active Substance: ASPIRIN
     Dosage: 100 MG, UNK
  9. PREDNISOLON [Concomitant]
     Active Substance: PREDNISOLONE
     Dosage: 5 MG, UNK
  10. CALCIMAGON D3 [Concomitant]
     Active Substance: CALCIUM\CHOLECALCIFEROL
     Dosage: 1 DF, OD
  11. BALDRIANWURZEL [Concomitant]
     Dosage: 1 DF, OD
  12. PROSTAVASIN [Concomitant]
     Active Substance: ALPROSTADIL ALFADEX
     Dosage: UNK
     Dates: start: 20170903, end: 20170903
  13. PANTOZOL [Concomitant]
     Active Substance: PANTOPRAZOLE SODIUM
     Dosage: 40 MG, UNK
  14. SIMVASTATIN. [Concomitant]
     Active Substance: SIMVASTATIN
     Dosage: 40 MG, UNK
  15. VENLAFAXIN [Concomitant]
     Active Substance: VENLAFAXINE HYDROCHLORIDE
     Dosage: 225 MG, UNK
  16. VERAPAMIL [Concomitant]
     Active Substance: VERAPAMIL HYDROCHLORIDE
     Dosage: 40 MG, TID
  17. THYROXIN [Concomitant]
     Active Substance: LEVOTHYROXINE
     Dosage: 75 ?G, UNK
  18. CLEXANE [Concomitant]
     Active Substance: ENOXAPARIN SODIUM
     Dosage: 0.3 ML, BID
  19. DREISAFER [Concomitant]
     Dosage: 100 MG, UNK
  20. PALLADON [Concomitant]
     Active Substance: HYDROMORPHONE
     Indication: PAIN
     Dosage: UNK
     Dates: start: 20170901, end: 20170904
  21. TADALAFIL [Concomitant]
     Active Substance: TADALAFIL
     Dosage: 20 MG, UNK
  22. FUROSEMID [Concomitant]
     Active Substance: FUROSEMIDE
     Dosage: 20 MG, UNK

REACTIONS (9)
  - General physical health deterioration [Unknown]
  - Atrial fibrillation [Unknown]
  - Hyperkalaemia [Fatal]
  - Scleroderma associated digital ulcer [Unknown]
  - Renal failure [Unknown]
  - Skin ulcer [Unknown]
  - Condition aggravated [Unknown]
  - Raynaud^s phenomenon [Unknown]
  - Loss of consciousness [Fatal]

NARRATIVE: CASE EVENT DATE: 201708
